FAERS Safety Report 6616772-1 (Version None)
Quarter: 2010Q1

REPORT INFORMATION
  Report Type: 
  Country: None (occurrence: None)
  Receive Date: 20100305
  Receipt Date: 20100223
  Transmission Date: 20100710
  Serious: Yes (Hospitalization)
  Sender: FDA-Public Use
  Company Number: JP-PFIZER INC-2010015481

PATIENT
  Age: 75 Year
  Sex: Female

DRUGS (9)
  1. CELECOX [Suspect]
     Indication: ARTHRALGIA
     Dosage: 100 MG, 2X/DAY
     Route: 048
     Dates: start: 20091125, end: 20091206
  2. CELECOX [Suspect]
     Indication: OSTEOARTHRITIS
  3. ALENDRONATE SODIUM [Suspect]
     Indication: OSTEOPOROSIS
     Dosage: 35 MG, UID, 1X/DAY
     Route: 048
     Dates: start: 20091125, end: 20091202
  4. ONE-ALPHA [Suspect]
     Indication: OSTEOPOROSIS
     Dosage: 1 UG, 1X/DAY
     Route: 048
     Dates: start: 20091125, end: 20091206
  5. ALDIOXA [Suspect]
     Indication: GASTRITIS
     Dosage: 100 MG, 2X/DAY
     Route: 048
     Dates: start: 20091125, end: 20091206
  6. BLOPRESS [Concomitant]
     Dosage: UNK
     Route: 048
  7. HIBON [Concomitant]
     Dosage: UNK
     Route: 048
  8. MUCOSOLVAN (LASOLVAN) [Concomitant]
     Dosage: UNK
     Route: 048
  9. SPIRIVA [Concomitant]
     Dosage: UNK
     Route: 055

REACTIONS (1)
  - DRUG ERUPTION [None]
